FAERS Safety Report 5133975-6 (Version None)
Quarter: 2006Q4

REPORT INFORMATION
  Report Type: 
  Country: None (occurrence: None)
  Receive Date: 20061023
  Receipt Date: 20061023
  Transmission Date: 20070319
  Serious: Yes (Other)
  Sender: FDA-Public Use
  Company Number: None

PATIENT
  Sex: Male
  Weight: 43.0917 kg

DRUGS (1)
  1. ALLEGRA [Suspect]
     Dosage: 30MG  ONE  PO  BID
     Route: 048
     Dates: start: 20040301

REACTIONS (1)
  - ABDOMINAL PAIN [None]
